FAERS Safety Report 5974928-5 (Version None)
Quarter: 2008Q4

REPORT INFORMATION
  Report Type: 
  Country: None (occurrence: None)
  Receive Date: 20081202
  Receipt Date: 20081125
  Transmission Date: 20090506
  Serious: Yes (Hospitalization)
  Sender: FDA-Public Use
  Company Number: DE-PFIZER INC-2008100935

PATIENT
  Sex: Female

DRUGS (6)
  1. SU-011,248 [Suspect]
     Indication: BREAST CANCER
     Route: 048
     Dates: start: 20080206, end: 20081101
  2. DOCETAXEL [Suspect]
     Indication: BREAST CANCER
     Route: 042
     Dates: start: 20080205, end: 20080528
  3. PRAVASTATIN SODIUM [Concomitant]
     Route: 048
  4. LOSARTAN POTASSIUM [Concomitant]
     Route: 048
  5. ALPHAGAN [Concomitant]
     Route: 048
  6. LATANOPROST [Concomitant]
     Route: 048

REACTIONS (1)
  - CONVULSION [None]
